FAERS Safety Report 19725861 (Version 3)
Quarter: 2021Q4

REPORT INFORMATION
  Report Type: Spontaneous
  Country: US (occurrence: US)
  Receive Date: 20210820
  Receipt Date: 20211002
  Transmission Date: 20220303
  Serious: No
  Sender: FDA-Public Use
  Company Number: US-JNJFOC-20210812954

PATIENT
  Age: 75 Year
  Sex: Female

DRUGS (1)
  1. TREMFYA [Suspect]
     Active Substance: GUSELKUMAB
     Indication: Psoriatic arthropathy
     Dosage: START DATE ALSO MENTIONED AS 20/AUG/2020
     Route: 058
     Dates: start: 20200720

REACTIONS (5)
  - Drug delivery system malfunction [Unknown]
  - Product dose omission issue [Unknown]
  - Device use issue [Unknown]
  - Accidental exposure to product [Unknown]
  - Malaise [Unknown]

NARRATIVE: CASE EVENT DATE: 20210101
